FAERS Safety Report 7360988-6 (Version None)
Quarter: 2011Q1

REPORT INFORMATION
  Report Type: 
  Country: None (occurrence: None)
  Receive Date: 20110318
  Receipt Date: 20110308
  Transmission Date: 20110831
  Serious: Yes (Hospitalization)
  Sender: FDA-Public Use
  Company Number: PHHY2011VN19531

PATIENT
  Age: 76 Year
  Sex: Female

DRUGS (1)
  1. ACLASTA [Suspect]
     Indication: OSTEOPOROSIS
     Dosage: 5MG/100ML
     Route: 042
     Dates: start: 20110302

REACTIONS (12)
  - ALANINE AMINOTRANSFERASE DECREASED [None]
  - GAIT DISTURBANCE [None]
  - ARTHRALGIA [None]
  - HYPOKINESIA [None]
  - JOINT EFFUSION [None]
  - ERYTHEMA [None]
  - ASPARTATE AMINOTRANSFERASE DECREASED [None]
  - WHITE BLOOD CELL COUNT INCREASED [None]
  - JOINT SWELLING [None]
  - JOINT WARMTH [None]
  - HAEMOGLOBIN DECREASED [None]
  - HYPOGLYCAEMIA [None]
